FAERS Safety Report 9350603 (Version 2)
Quarter: 2013Q3

REPORT INFORMATION
  Report Type: Spontaneous
  Country: JP (occurrence: JP)
  Receive Date: 20130617
  Receipt Date: 20130702
  Transmission Date: 20140515
  Serious: Yes (Other)
  Sender: FDA-Public Use
  Company Number: JP-UCBSA-088935

PATIENT
  Age: 81 Year
  Sex: Male

DRUGS (6)
  1. NEUPRO [Suspect]
     Indication: RESTLESS LEGS SYNDROME
     Dosage: 2.25 MG DAILY
     Route: 061
     Dates: start: 20130516, end: 20130529
  2. NEUPRO [Suspect]
     Indication: RESTLESS LEGS SYNDROME
     Dosage: 4.5 MG DAILY
     Route: 061
     Dates: start: 20130530, end: 20130603
  3. ETIZOLAM [Concomitant]
  4. LIMAPROST ALFADEX [Concomitant]
     Dosage: DOSE UNKNOWN
  5. VALSARTAN [Concomitant]
  6. ZOLPIDEM TARTRATE [Concomitant]

REACTIONS (1)
  - Depressed level of consciousness [Recovered/Resolved]
